FAERS Safety Report 8110914-7 (Version None)
Quarter: 2012Q1

REPORT INFORMATION
  Report Type: 
  Country: None (occurrence: None)
  Receive Date: 20120127
  Receipt Date: 20120120
  Transmission Date: 20120608
  Serious: Yes (Hospitalization)
  Sender: FDA-Public Use
  Company Number: 2011029109

PATIENT
  Age: 19 Year
  Sex: Female
  Weight: 78.0187 kg

DRUGS (14)
  1. ZOLOFT [Concomitant]
  2. ALBUTEROL [Concomitant]
  3. ALLEGRA [Concomitant]
  4. ADVAIR HFA [Concomitant]
  5. HIZENTRA [Suspect]
     Indication: AUTOIMMUNE DISORDER
     Dosage: 10;12;60 G/ML 1/WEEK, INFUSED IN MULTIPLE SITE,5-6 SITES OVER 1-2 HOURS, SUBCUTANEOUS
     Route: 058
     Dates: start: 20120112, end: 20120112
  6. HIZENTRA [Suspect]
     Indication: RESPIRATORY DISORDER
     Dosage: 10;12;60 G/ML 1/WEEK, INFUSED IN MULTIPLE SITE,5-6 SITES OVER 1-2 HOURS, SUBCUTANEOUS
     Route: 058
     Dates: start: 20120112, end: 20120112
  7. HIZENTRA [Suspect]
     Indication: HYPOGAMMAGLOBULINAEMIA
     Dosage: 10;12;60 G/ML 1/WEEK, INFUSED IN MULTIPLE SITE,5-6 SITES OVER 1-2 HOURS, SUBCUTANEOUS
     Route: 058
     Dates: start: 20120112, end: 20120112
  8. HIZENTRA [Suspect]
     Indication: AUTOIMMUNE DISORDER
     Dosage: 10;12;60 G/ML 1/WEEK, INFUSED IN MULTIPLE SITE,5-6 SITES OVER 1-2 HOURS, SUBCUTANEOUS
     Route: 058
     Dates: start: 20110303, end: 20110612
  9. HIZENTRA [Suspect]
     Indication: RESPIRATORY DISORDER
     Dosage: 10;12;60 G/ML 1/WEEK, INFUSED IN MULTIPLE SITE,5-6 SITES OVER 1-2 HOURS, SUBCUTANEOUS
     Route: 058
     Dates: start: 20110303, end: 20110612
  10. HIZENTRA [Suspect]
     Indication: HYPOGAMMAGLOBULINAEMIA
     Dosage: 10;12;60 G/ML 1/WEEK, INFUSED IN MULTIPLE SITE,5-6 SITES OVER 1-2 HOURS, SUBCUTANEOUS
     Route: 058
     Dates: start: 20110303, end: 20110612
  11. HIZENTRA [Suspect]
  12. HIZENTRA [Suspect]
  13. ACETMAINOPHEN (PARACETAMOL) [Concomitant]
  14. IBUPROFEN [Concomitant]

REACTIONS (3)
  - MUSCLE TWITCHING [None]
  - ARTHRALGIA [None]
  - FATIGUE [None]
